FAERS Safety Report 10896939 (Version 1)
Quarter: 2015Q1

REPORT INFORMATION
  Report Type: Spontaneous
  Country: US (occurrence: US)
  Receive Date: 20150309
  Receipt Date: 20150309
  Transmission Date: 20150721
  Serious: Yes (Other)
  Sender: FDA-Public Use
  Company Number: US-SUN PHARMACEUTICAL INDUSTRIES LTD-2015SUN00310

PATIENT

DRUGS (1)
  1. RANITIDINE HYDROCHLORIDE SYRUP USP, 15 MG/ML [Suspect]
     Active Substance: RANITIDINE HYDROCHLORIDE
     Indication: REFLUX GASTRITIS
     Dosage: 1.4 ML, TID
     Route: 048

REACTIONS (1)
  - Haematochezia [Unknown]
